FAERS Safety Report 8917971 (Version 1)
Quarter: 2012Q4

REPORT INFORMATION
  Report Type: 
  Country: US (occurrence: US)
  Receive Date: 20121120
  Receipt Date: 20121120
  Transmission Date: 20130627
  Serious: No
  Sender: FDA-Public Use
  Company Number: US-ASTRAZENECA-2012SE16426

PATIENT
  Age: 41 Year
  Sex: Female

DRUGS (3)
  1. NEXIUM [Suspect]
     Route: 048
  2. DILTIAZEM [Suspect]
  3. LIBRAX [Suspect]

REACTIONS (4)
  - Dyspnoea [Unknown]
  - Dyskinesia oesophageal [Unknown]
  - Dysphonia [Unknown]
  - Drug hypersensitivity [Unknown]
